FAERS Safety Report 22217253 (Version 1)
Quarter: 2023Q2

REPORT INFORMATION
  Report Type: Report from Study
  Country: DE (occurrence: None)
  Receive Date: 20230417
  Receipt Date: 20230417
  Transmission Date: 20230721
  Serious: Yes (Hospitalization)
  Sender: FDA-Public Use
  Company Number: DE-Merck Healthcare KGaA-9194127

PATIENT
  Age: 55 Year
  Sex: Male

DRUGS (1)
  1. REBIF [Suspect]
     Active Substance: INTERFERON BETA-1A
     Indication: Multiple sclerosis
     Dosage: THERAPY END: ABOUT 1 YEAR AGO (AS OF 12 APR 2023)
     Route: 058
     Dates: start: 2010

REACTIONS (9)
  - Cellulitis [Not Recovered/Not Resolved]
  - Injection site induration [Not Recovered/Not Resolved]
  - Injection site indentation [Not Recovered/Not Resolved]
  - Injection site pain [Recovered/Resolved]
  - Multiple sclerosis [Unknown]
  - Injury associated with device [Not Recovered/Not Resolved]
  - Limb injury [Not Recovered/Not Resolved]
  - Device defective [Not Recovered/Not Resolved]
  - Product dose omission issue [Not Recovered/Not Resolved]

NARRATIVE: CASE EVENT DATE: 20201021
